FAERS Safety Report 22154744 (Version 1)
Quarter: 2023Q1

REPORT INFORMATION
  Report Type: Spontaneous
  Country: CA (occurrence: CA)
  Receive Date: 20230330
  Receipt Date: 20230330
  Transmission Date: 20230417
  Serious: Yes (Other)
  Sender: FDA-Public Use
  Company Number: CA-CELLTRION INC.-2022CA004319

PATIENT

DRUGS (12)
  1. INFLECTRA [Suspect]
     Active Substance: INFLIXIMAB-DYYB
     Indication: Colitis ulcerative
     Dosage: 639 MG FREQUENCY UNKNOWN
     Route: 042
     Dates: start: 20220414
  2. INFLECTRA [Suspect]
     Active Substance: INFLIXIMAB-DYYB
     Dosage: 7.5 MG/KG, FREQUENCY: 7 WEEKS
     Route: 042
     Dates: start: 20220414
  3. INFLECTRA [Suspect]
     Active Substance: INFLIXIMAB-DYYB
     Dosage: 639 MG FREQUENCY UNKNOWN
     Route: 042
     Dates: start: 20220908
  4. INFLECTRA [Suspect]
     Active Substance: INFLIXIMAB-DYYB
     Dosage: 639 MG FREQUENCY UNKNOWN
     Route: 042
     Dates: start: 20221027
  5. INFLECTRA [Suspect]
     Active Substance: INFLIXIMAB-DYYB
     Dosage: 7.5 MG/KG, FREQUENCY: 7 WEEKS
     Route: 042
     Dates: start: 20221027
  6. INFLECTRA [Suspect]
     Active Substance: INFLIXIMAB-DYYB
     Dosage: 7.5 MG/KG (612MG), FREQUENCY: 7 WEEKS
     Route: 042
     Dates: start: 20221215
  7. INFLECTRA [Suspect]
     Active Substance: INFLIXIMAB-DYYB
     Dosage: 7.5 MG/KG (612MG), FREQUENCY: 7 WEEKS
     Route: 042
     Dates: start: 20230202
  8. INFLECTRA [Suspect]
     Active Substance: INFLIXIMAB-DYYB
     Dosage: 7.5 MG/KG (604.5 MG), EVERY 7 WEEKS
     Route: 042
     Dates: start: 20230323
  9. DAPSONE [Concomitant]
     Active Substance: DAPSONE
     Dosage: 1 DF
  10. DAPSONE [Concomitant]
     Active Substance: DAPSONE
     Dosage: UNK (STOPPED PRESCRIPTION OF DAPSONE)
  11. PANTOPRAZOLE SODIUM [Concomitant]
     Active Substance: PANTOPRAZOLE SODIUM
     Dosage: 1 DF
  12. VITAMIN B12 [Concomitant]
     Active Substance: CYANOCOBALAMIN
     Dosage: 1 DF

REACTIONS (5)
  - Pneumonia [Recovering/Resolving]
  - Anaemia [Unknown]
  - Off label use [Unknown]
  - Off label use [Unknown]
  - Intentional product use issue [Unknown]

NARRATIVE: CASE EVENT DATE: 20220414
